FAERS Safety Report 15618279 (Version 5)
Quarter: 2019Q3

REPORT INFORMATION
  Report Type: Spontaneous
  Country: FR (occurrence: FR)
  Receive Date: 20181114
  Receipt Date: 20190920
  Transmission Date: 20191004
  Serious: Yes (Other)
  Sender: FDA-Public Use
  Company Number: PHHY2018FR151641

PATIENT
  Age: 84 Year
  Sex: Female
  Weight: 50 kg

DRUGS (6)
  1. IBRANCE [Suspect]
     Active Substance: PALBOCICLIB
     Dosage: 125 MG, QD
     Route: 065
  2. FEMARA [Suspect]
     Active Substance: LETROZOLE
     Indication: PRODUCT USED FOR UNKNOWN INDICATION
     Dosage: 2.5 MG, UNK
     Route: 065
  3. IBRANCE [Suspect]
     Active Substance: PALBOCICLIB
     Indication: BREAST CANCER FEMALE
     Dosage: 125 MG, QD
     Route: 065
     Dates: start: 20180918
  4. IBRANCE [Suspect]
     Active Substance: PALBOCICLIB
     Dosage: 100 MG, UNK
     Route: 065
  5. IBRANCE [Suspect]
     Active Substance: PALBOCICLIB
     Dosage: UNK UNK, CYCLIC (3 WEEKS, 2 WEEKS WITHDRAWAL)
     Route: 065
  6. DESOMEDINE [Concomitant]
     Active Substance: HEXAMIDINE DIISETHIONATE
     Dosage: UNK

REACTIONS (40)
  - Lacrimation increased [Not Recovered/Not Resolved]
  - Heart rate increased [Unknown]
  - Drug withdrawal syndrome [Unknown]
  - Platelet count decreased [Unknown]
  - Haematocrit decreased [Unknown]
  - Blister [Unknown]
  - Malaise [Unknown]
  - Dyspnoea [Not Recovered/Not Resolved]
  - Throat tightness [Unknown]
  - Finger deformity [Unknown]
  - Skin discolouration [Unknown]
  - Anxiety [Unknown]
  - Fatigue [Unknown]
  - Constipation [Unknown]
  - Visual impairment [Not Recovered/Not Resolved]
  - Dark circles under eyes [Unknown]
  - Eye disorder [Unknown]
  - White blood cell count decreased [Not Recovered/Not Resolved]
  - Alopecia [Unknown]
  - Feeling abnormal [Unknown]
  - Tinnitus [Unknown]
  - Neoplasm progression [Unknown]
  - Nausea [Unknown]
  - Vision blurred [Not Recovered/Not Resolved]
  - Vomiting [Unknown]
  - Fear [Unknown]
  - Hair colour changes [Unknown]
  - Blood iron decreased [Unknown]
  - Red blood cell count decreased [Unknown]
  - Rheumatoid arthritis [Unknown]
  - Diarrhoea [Unknown]
  - Chest discomfort [Unknown]
  - Arrhythmia [Unknown]
  - Mood altered [Unknown]
  - Pleural effusion [Recovered/Resolved]
  - Depressed mood [Unknown]
  - Arthropathy [Unknown]
  - Stress [Unknown]
  - Asocial behaviour [Unknown]
  - Dyspnoea [Unknown]

NARRATIVE: CASE EVENT DATE: 2018
